FAERS Safety Report 15409046 (Version 1)
Quarter: 2018Q3

REPORT INFORMATION
  Report Type: Spontaneous
  Country: US (occurrence: US)
  Receive Date: 20180920
  Receipt Date: 20180920
  Transmission Date: 20181010
  Serious: Yes (Hospitalization)
  Sender: FDA-Public Use
  Company Number: US-JNJFOC-20180916328

PATIENT
  Age: 74 Year
  Sex: Female
  Weight: 59.88 kg

DRUGS (7)
  1. METOPROLOL. [Concomitant]
     Active Substance: METOPROLOL
     Indication: BLOOD PRESSURE MEASUREMENT
     Route: 048
  2. POTASSIUM CHLORIDE. [Concomitant]
     Active Substance: POTASSIUM CHLORIDE
     Indication: HYPOKALAEMIA
     Route: 048
  3. AMLODIPINE [Concomitant]
     Active Substance: AMLODIPINE BESYLATE
     Indication: BLOOD PRESSURE MEASUREMENT
     Route: 048
  4. HYDROCHLOROTHIAZIDE. [Concomitant]
     Active Substance: HYDROCHLOROTHIAZIDE
     Indication: DIURETIC THERAPY
     Dosage: 12.5MG/ HALF A TAB ONCE A DAY
     Route: 048
  5. VITAMINE D [Concomitant]
     Route: 048
  6. XARELTO [Suspect]
     Active Substance: RIVAROXABAN
     Indication: PULMONARY EMBOLISM
     Route: 048
  7. XARELTO [Suspect]
     Active Substance: RIVAROXABAN
     Indication: PULMONARY EMBOLISM
     Route: 048
     Dates: start: 201511

REACTIONS (9)
  - Spinal compression fracture [Unknown]
  - Dizziness [Unknown]
  - Fall [Unknown]
  - Gastric ulcer haemorrhage [Unknown]
  - Joint injury [Unknown]
  - Joint swelling [Unknown]
  - Wrong technique in product usage process [Unknown]
  - Product label issue [Unknown]
  - Contusion [Unknown]

NARRATIVE: CASE EVENT DATE: 2016
